FAERS Safety Report 7514037-7 (Version None)
Quarter: 2011Q2

REPORT INFORMATION
  Report Type: 
  Country: None (occurrence: None)
  Receive Date: 20110531
  Receipt Date: 20100210
  Transmission Date: 20111010
  Serious: No
  Sender: FDA-Public Use
  Company Number: US-BAYER-201013700NA

PATIENT
  Sex: Female

DRUGS (11)
  1. AVELOX [Suspect]
     Indication: SINUSITIS
     Dosage: 400 MG, QD
     Route: 048
     Dates: start: 20100204
  2. BACLOFEN [Concomitant]
  3. METFORMIN HCL [Concomitant]
  4. VICODIN [Concomitant]
  5. ZETIA [Concomitant]
  6. PROTONIX [Concomitant]
  7. AMBIEN [Concomitant]
  8. LOPID [Concomitant]
  9. PROZAC [Concomitant]
  10. ZOFRAN [Concomitant]
  11. ZYRTEC [Concomitant]

REACTIONS (1)
  - DIARRHOEA [None]
